FAERS Safety Report 8780413 (Version 1)
Quarter: 2012Q4

REPORT INFORMATION
  Report Type: Spontaneous
  Country: US (occurrence: None)
  Receive Date: 20120905
  Receipt Date: 20120905
  Transmission Date: 20130627
  Serious: Yes (Disabling, Other)
  Sender: FDA-Public Use
  Company Number: None

PATIENT
  Sex: Female

DRUGS (1)
  1. RESTASIS [Suspect]
     Dosage: morning/night
     Route: 047

REACTIONS (4)
  - Eye disorder [None]
  - Eye pain [None]
  - Rash [None]
  - Eye irritation [None]
